FAERS Safety Report 13344433 (Version 1)
Quarter: 2017Q1

REPORT INFORMATION
  Report Type: Spontaneous
  Country: IT (occurrence: IT)
  Receive Date: 20170317
  Receipt Date: 20170317
  Transmission Date: 20170428
  Serious: Yes (Hospitalization)
  Sender: FDA-Public Use
  Company Number: IT-ASTRAZENECA-2017SE26781

PATIENT
  Age: 21038 Day
  Sex: Male
  Weight: 80 kg

DRUGS (1)
  1. MEROPENEM. [Suspect]
     Active Substance: MEROPENEM
     Indication: PNEUMONITIS
     Route: 042
     Dates: start: 20170302, end: 20170306

REACTIONS (4)
  - Psychomotor hyperactivity [Recovering/Resolving]
  - Delirium [Unknown]
  - Delusion [Recovering/Resolving]
  - Psychotic disorder [Recovering/Resolving]

NARRATIVE: CASE EVENT DATE: 20170305
